FAERS Safety Report 9951500 (Version 1)
Quarter: 2014Q1

REPORT INFORMATION
  Report Type: Report from Study
  Country: US (occurrence: US)
  Receive Date: 20140304
  Receipt Date: 20140304
  Transmission Date: 20141002
  Serious: No
  Sender: FDA-Public Use
  Company Number: US-ABBVIE-13P-163-1071404-00

PATIENT
  Age: 30 Year
  Sex: Female

DRUGS (3)
  1. HUMIRA [Suspect]
     Indication: PSORIATIC ARTHROPATHY
     Dates: start: 20130211
  2. CANASA [Concomitant]
     Indication: POUCHITIS
  3. FLOVENT [Concomitant]
     Indication: COUGH
     Dosage: 1-2 PUFFS

REACTIONS (5)
  - Feeling abnormal [Unknown]
  - Cough [Not Recovered/Not Resolved]
  - Rash papular [Unknown]
  - Pruritus [Unknown]
  - Injection site pain [Unknown]
